FAERS Safety Report 23707974 (Version 1)
Quarter: 2024Q2

REPORT INFORMATION
  Report Type: Report from Study
  Country: EG (occurrence: EG)
  Receive Date: 20240404
  Receipt Date: 20240404
  Transmission Date: 20240716
  Serious: No
  Sender: FDA-Public Use
  Company Number: EG-002147023-NVSC2022EG126633

PATIENT
  Age: 12 Year
  Sex: Female

DRUGS (4)
  1. OMNITROPE [Suspect]
     Active Substance: SOMATROPIN
     Indication: Product used for unknown indication
     Dosage: 1.2 MG, QD (STOP DATE TWO WEEKS AGO)
     Route: 058
     Dates: start: 20220525
  2. Feroglobin [Concomitant]
     Indication: Nutritional supplementation
     Dosage: 1 DOSAGE FORM, QD (BEFORE STARTING OMNITROPE)
     Route: 048
  3. OCTOZINC [Concomitant]
     Indication: Nutritional supplementation
     Dosage: 1 DOSAGE FORM, QD (BEFORE STARTING OMNITROPE)
     Route: 048
  4. OSTEOCARE [Concomitant]
     Active Substance: CALCIUM\CHOLECALCIFEROL\MAGNESIUM\ZINC
     Indication: Nutritional supplementation
     Dosage: 1 DOSAGE FORM, QD
     Route: 048

REACTIONS (5)
  - Product availability issue [Not Recovered/Not Resolved]
  - Product dose omission issue [Not Recovered/Not Resolved]
  - Accidental exposure to product [Not Recovered/Not Resolved]
  - Device defective [Recovered/Resolved]
  - Therapy cessation [Unknown]

NARRATIVE: CASE EVENT DATE: 20220501
